FAERS Safety Report 5531641-6 (Version None)
Quarter: 2007Q4

REPORT INFORMATION
  Report Type: 
  Country: None (occurrence: None)
  Receive Date: 20071128
  Receipt Date: 20071116
  Transmission Date: 20080405
  Serious: Yes (Hospitalization)
  Sender: FDA-Public Use
  Company Number: GXKR2006GB08365

PATIENT
  Age: 25 Year
  Sex: Female

DRUGS (1)
  1. FLUVOXAMINE MALEATE [Suspect]
     Dosage: 9.6 G, ORAL
     Route: 048

REACTIONS (9)
  - CARDIAC ARREST [None]
  - CIRCULATORY COLLAPSE [None]
  - DRUG TOXICITY [None]
  - GRAND MAL CONVULSION [None]
  - HYPERGLYCAEMIA [None]
  - OVERDOSE [None]
  - SOMNOLENCE [None]
  - STATUS EPILEPTICUS [None]
  - TACHYCARDIA [None]
